FAERS Safety Report 4950799-0 (Version None)
Quarter: 2006Q1

REPORT INFORMATION
  Report Type: 
  Country: None (occurrence: None)
  Receive Date: 20060322
  Receipt Date: 20060316
  Transmission Date: 20060701
  Serious: Yes (Other)
  Sender: FDA-Public Use
  Company Number: PHNU2006DE01350

PATIENT
  Sex: Male

DRUGS (1)
  1. TRILEPTAL [Suspect]

REACTIONS (2)
  - CONDITION AGGRAVATED [None]
  - CONVULSION [None]
